FAERS Safety Report 12625179 (Version 3)
Quarter: 2016Q3

REPORT INFORMATION
  Report Type: Spontaneous
  Country: DE (occurrence: DE)
  Receive Date: 20160805
  Receipt Date: 20160823
  Transmission Date: 20161109
  Serious: Yes (Hospitalization)
  Sender: FDA-Public Use
  Company Number: DE-MYLANLABS-2016M1032583

PATIENT

DRUGS (8)
  1. LEPONEX [Suspect]
     Active Substance: CLOZAPINE
     Indication: SCHIZOAFFECTIVE DISORDER
     Dosage: 200 MG, QD
     Route: 048
  2. ORFIRIL [Concomitant]
     Active Substance: VALPROIC ACID
     Dosage: 1500 MG, QD
  3. ORFIRIL [Concomitant]
     Active Substance: VALPROIC ACID
     Indication: IMPULSIVE BEHAVIOUR
     Dosage: 2000 MG, QD
  4. HALDOL DECAN [Concomitant]
     Indication: HALLUCINATION
     Dosage: 100 MG, QD
     Route: 030
  5. LEPONEX [Suspect]
     Active Substance: CLOZAPINE
     Dosage: 150 MG, QD
     Route: 048
     Dates: end: 201607
  6. LEPONEX [Suspect]
     Active Substance: CLOZAPINE
     Indication: SCHIZOPHRENIA
     Dosage: 400 MG, QD
     Route: 048
     Dates: start: 20120416, end: 20160725
  7. LEPONEX [Suspect]
     Active Substance: CLOZAPINE
     Dosage: UNK
  8. LAMOTRIGIN [Concomitant]
     Active Substance: LAMOTRIGINE
     Indication: MOOD ALTERED
     Dosage: 200 MG, QD
     Route: 048

REACTIONS (9)
  - Psychotic disorder [Unknown]
  - Posture abnormal [Recovered/Resolved]
  - Fluid intake reduced [Unknown]
  - Sedation [Recovered/Resolved]
  - Antipsychotic drug level increased [Recovered/Resolved]
  - Leukopenia [Recovered/Resolved]
  - C-reactive protein increased [Unknown]
  - Neutropenia [Recovering/Resolving]
  - Dysarthria [Recovered/Resolved]

NARRATIVE: CASE EVENT DATE: 2016
